FAERS Safety Report 7961494-8 (Version None)
Quarter: 2011Q4

REPORT INFORMATION
  Report Type: 
  Country: None (occurrence: None)
  Receive Date: 20111207
  Receipt Date: 20111124
  Transmission Date: 20120403
  Serious: Yes (Hospitalization, Other)
  Sender: FDA-Public Use
  Company Number: JP-AMGEN-JPNSP2011053954

PATIENT
  Age: 72 Year
  Sex: Male
  Weight: 48 kg

DRUGS (11)
  1. CELECOXIB [Concomitant]
     Indication: RHEUMATOID ARTHRITIS
     Dosage: 200 MG, 2X/DAY
     Route: 048
     Dates: start: 20100330
  2. METHOTREXATE SODIUM [Concomitant]
     Indication: RHEUMATOID ARTHRITIS
     Dosage: 10 MG, WEEKLY
     Route: 048
     Dates: start: 20110531
  3. ENBREL [Suspect]
     Dosage: 50 MG, WEEKLY
     Route: 058
     Dates: start: 20110426, end: 20111018
  4. FOLIC ACID [Concomitant]
     Indication: RHEUMATOID ARTHRITIS
     Dosage: 5 UNK, WEEKLY
     Route: 048
     Dates: start: 20100330
  5. METHOTREXATE SODIUM [Concomitant]
     Dosage: 6 MG, WEEKLY
     Dates: start: 20100301, end: 20100401
  6. MUCOSTA [Concomitant]
     Indication: PRODUCT USED FOR UNKNOWN INDICATION
     Dosage: 100 MG, 2X/DAY
     Route: 048
     Dates: start: 20100330
  7. METHOTREXATE SODIUM [Concomitant]
     Dosage: 8 MG, WEEKLY
     Dates: start: 20100401
  8. URALYT                             /01779901/ [Concomitant]
     Indication: HYPERURICAEMIA
     Dosage: 1 G, 1X/DAY
     Dates: start: 20110628
  9. ENBREL [Suspect]
     Dosage: 25 MG, 2X/WEEK
     Route: 058
     Dates: start: 20110412, end: 20110423
  10. ENBREL [Suspect]
     Indication: RHEUMATOID ARTHRITIS
     Dosage: 50 MG, WEEKLY
     Route: 058
     Dates: start: 20110414, end: 20111029
  11. URINORM [Concomitant]
     Indication: HYPERURICAEMIA
     Dosage: 25 MG, 1X/DAY
     Route: 048
     Dates: start: 20110628

REACTIONS (3)
  - METASTASES TO BONE [None]
  - BLOOD ALKALINE PHOSPHATASE INCREASED [None]
  - PROSTATE CANCER [None]
